FAERS Safety Report 17003616 (Version 3)
Quarter: 2019Q4

REPORT INFORMATION
  Report Type: Spontaneous
  Country: JP (occurrence: JP)
  Receive Date: 20191107
  Receipt Date: 20191227
  Transmission Date: 20200122
  Serious: Yes (Death, Other)
  Sender: FDA-Public Use
  Company Number: JP-GLAXOSMITHKLINE-JP2019JPN187876

PATIENT
  Age: 82 Year
  Sex: Male

DRUGS (11)
  1. REQUIP [Suspect]
     Active Substance: ROPINIROLE HYDROCHLORIDE
     Indication: PARKINSON^S DISEASE
     Dosage: 2.25 MG, QD
     Route: 048
     Dates: start: 2018, end: 201910
  2. AMBROXOL HYDROCHLORIDE TABLETS [Concomitant]
     Dosage: 15 MG, TID
  3. ASPARA POTASSIUM POWDER [Concomitant]
     Dosage: 0.4 MG, TID
  4. CETIRIZINE [Concomitant]
     Active Substance: CETIRIZINE HYDROCHLORIDE
     Dosage: 20 MG, QD
  5. REQUIP [Suspect]
     Active Substance: ROPINIROLE HYDROCHLORIDE
     Indication: PARKINSON^S DISEASE
     Dosage: 2 MG, 1D
     Route: 048
     Dates: end: 2018
  6. TAMSULOSIN HYDROCHLORIDE OD [Concomitant]
     Active Substance: TAMSULOSIN HYDROCHLORIDE
     Dosage: 0.2 MG, QD, AFTER BREAKFAST
     Dates: start: 201910
  7. TAMSULOSIN HYDROCHLORIDE OD [Concomitant]
     Active Substance: TAMSULOSIN HYDROCHLORIDE
     Dosage: 0.2 MG, BID
     Dates: end: 201910
  8. NEODOPASTON [Concomitant]
     Active Substance: CARBIDOPA\LEVODOPA
     Dosage: 200 MG, TID
  9. DAIKENCHUTO [Concomitant]
     Active Substance: HERBALS
     Dosage: 2.5 G, TID
  10. REQUIP [Suspect]
     Active Substance: ROPINIROLE HYDROCHLORIDE
     Dosage: 2.25 MG, TID, AFTER EVERY MEAL
     Route: 050
     Dates: start: 201910
  11. MAGMITT TABLET [Concomitant]
     Dosage: 330 MG, TID

REACTIONS (3)
  - Parkinson^s disease [Fatal]
  - Product use issue [Unknown]
  - Dysphagia [Fatal]

NARRATIVE: CASE EVENT DATE: 2018
